FAERS Safety Report 4524453-3 (Version None)
Quarter: 2004Q4

REPORT INFORMATION
  Report Type: 
  Country: None (occurrence: None)
  Receive Date: 20041116
  Receipt Date: 20040720
  Transmission Date: 20050328
  Serious: No
  Sender: FDA-Public Use
  Company Number: PHEH2004US05421

PATIENT
  Age: 65 Year
  Sex: Male

DRUGS (8)
  1. GLEEVEC [Suspect]
     Indication: GASTROINTESTINAL STROMAL TUMOUR
     Dosage: 400 MG, QD, ORAL
     Route: 048
     Dates: start: 20031001
  2. GLEEVEC [Suspect]
     Indication: GASTROINTESTINAL STROMAL TUMOUR
     Dosage: 400 MG, QD
     Dates: start: 20030921, end: 20031001
  3. NEXIUM [Concomitant]
  4. CATAPRES [Concomitant]
  5. PROCARDIA XL [Concomitant]
  6. VALIUM [Concomitant]
  7. LASIX [Concomitant]
  8. POTASSIUM CHLORIDE [Concomitant]

REACTIONS (5)
  - DIARRHOEA [None]
  - EYELASH DISCOLOURATION [None]
  - FEELING ABNORMAL [None]
  - NAUSEA [None]
  - PERIORBITAL OEDEMA [None]
